FAERS Safety Report 21227416 (Version 2)
Quarter: 2022Q3

REPORT INFORMATION
  Report Type: Spontaneous
  Country: CA (occurrence: CA)
  Receive Date: 20220818
  Receipt Date: 20220823
  Transmission Date: 20221027
  Serious: Yes (Hospitalization, Other)
  Sender: FDA-Public Use
  Company Number: None

PATIENT
  Age: 15 Year
  Sex: Female

DRUGS (7)
  1. IRINOTECAN HYDROCHLORIDE [Suspect]
     Active Substance: IRINOTECAN HYDROCHLORIDE
     Indication: Alveolar rhabdomyosarcoma
     Dosage: CYCLICAL, SOLUTION INTRAVENOUS
  2. LOPERAMIDE [Suspect]
     Active Substance: LOPERAMIDE
     Indication: Diarrhoea
  3. PANCRELIPASE [Suspect]
     Active Substance: PANCRELIPASE
     Indication: Diarrhoea
  4. VINCRISTINE [Suspect]
     Active Substance: VINCRISTINE
     Indication: Alveolar rhabdomyosarcoma
  5. CYCLOPHOSPHAMIDE [Concomitant]
     Active Substance: CYCLOPHOSPHAMIDE
     Indication: Alveolar rhabdomyosarcoma
     Dosage: CYCLICAL
  6. DACTINOMYCIN [Concomitant]
     Active Substance: DACTINOMYCIN
     Indication: Alveolar rhabdomyosarcoma
     Dosage: CYCLICAL
  7. VINCRISTINE [Concomitant]
     Active Substance: VINCRISTINE
     Indication: Alveolar rhabdomyosarcoma
     Dosage: CYCLICAL

REACTIONS (4)
  - Diarrhoea [Unknown]
  - Toxicity to various agents [Unknown]
  - Off label use [Unknown]
  - Drug ineffective [Unknown]
